FAERS Safety Report 6148801-6 (Version None)
Quarter: 2009Q2

REPORT INFORMATION
  Report Type: 
  Country: None (occurrence: None)
  Receive Date: 20090408
  Receipt Date: 20090403
  Transmission Date: 20091009
  Serious: Yes (Hospitalization, Other)
  Sender: FDA-Public Use
  Company Number: BR-ABBOTT-08P-020-0491497-00

PATIENT
  Sex: Male
  Weight: 53 kg

DRUGS (4)
  1. RITONAVIR SOFT GELATIN CAPSULES [Suspect]
     Indication: HIV INFECTION
     Route: 048
     Dates: start: 20080616
  2. TMC114 [Concomitant]
     Indication: HIV INFECTION
     Dates: start: 20080616
  3. TMC-125 [Concomitant]
     Indication: HIV INFECTION
     Dates: start: 20080616
  4. COMBIVIR [Concomitant]
     Indication: DRUG USE FOR UNKNOWN INDICATION
     Dates: end: 20081130

REACTIONS (1)
  - ANAEMIA [None]
